FAERS Safety Report 4847899-2 (Version None)
Quarter: 2005Q4

REPORT INFORMATION
  Report Type: 
  Country: None (occurrence: None)
  Receive Date: 20051206
  Receipt Date: 20051206
  Transmission Date: 20060501
  Serious: Yes (Hospitalization)
  Sender: FDA-Public Use
  Company Number: None

PATIENT
  Age: 59 Year
  Sex: Male
  Weight: 83.6 kg

DRUGS (9)
  1. OPTIMARK [Suspect]
     Indication: VENTRICULAR DYSFUNCTION
     Dosage: 33.4 ML ONCE IV BOLUS
     Route: 040
     Dates: start: 20031017, end: 20031017
  2. ASPIRIN [Concomitant]
  3. METOPROLOL [Concomitant]
  4. ZOCOR [Concomitant]
  5. PHENERGAN [Concomitant]
  6. BUMEX [Concomitant]
  7. VANCOMYCIN [Concomitant]
  8. ALTACE [Concomitant]
  9. COREG [Concomitant]

REACTIONS (8)
  - EJECTION FRACTION DECREASED [None]
  - LEUKOCYTOSIS [None]
  - PNEUMONIA [None]
  - POST PROCEDURAL COMPLICATION [None]
  - PULMONARY OEDEMA [None]
  - RESPIRATORY FAILURE [None]
  - TRACHEOBRONCHITIS [None]
  - VASCULAR BYPASS GRAFT [None]
